FAERS Safety Report 9228694 (Version 3)
Quarter: 2013Q4

REPORT INFORMATION
  Report Type: Spontaneous
  Country: US (occurrence: US)
  Receive Date: 20130412
  Receipt Date: 20131206
  Transmission Date: 20140711
  Serious: Yes (Other)
  Sender: FDA-Public Use
  Company Number: US-BAYER-2013-045408

PATIENT
  Age: 29 Year
  Sex: Female
  Weight: 92.97 kg

DRUGS (5)
  1. YASMIN [Suspect]
     Indication: CONTRACEPTION
     Dosage: UNK
     Dates: start: 201101, end: 201107
  2. YASMIN [Suspect]
     Indication: PELVIC CONGESTION
  3. OCELLA [Suspect]
     Indication: CONTRACEPTION
     Dosage: UNK
     Dates: start: 201101, end: 201107
  4. OCELLA [Suspect]
     Indication: PELVIC CONGESTION
  5. HYDROCODONE [Concomitant]
     Indication: PAIN

REACTIONS (16)
  - Deep vein thrombosis [None]
  - Ovarian vein thrombosis [None]
  - Pelvic venous thrombosis [None]
  - Pain [None]
  - Thrombosis [None]
  - Abdominal pain [None]
  - Injury [None]
  - Pain [None]
  - General physical health deterioration [None]
  - Anxiety [None]
  - Emotional distress [None]
  - Abdominal pain lower [None]
  - Gait disturbance [None]
  - Abasia [None]
  - Pain in extremity [None]
  - Local swelling [None]
